FAERS Safety Report 10011363 (Version 1)
Quarter: 2014Q1

REPORT INFORMATION
  Report Type: Spontaneous
  Country: CA (occurrence: None)
  Receive Date: 20140311
  Receipt Date: 20140311
  Transmission Date: 20141002
  Serious: Yes (Death)
  Sender: FDA-Public Use
  Company Number: SYM-2014-18509

PATIENT
  Sex: 0

DRUGS (4)
  1. FLUOROURACIL [Suspect]
     Indication: ADENOCARCINOMA PANCREAS
  2. OXALIPLATIN (OXALIPLATIN) (OXALIPLATIN) [Suspect]
     Indication: ADENOCARCINOMA PANCREAS
  3. IRINOTECAN [Suspect]
     Indication: ADENOCARCINOMA PANCREAS
  4. LEUCOVORIN (FOLINIC ACID) (FOLINIC ACID) [Suspect]
     Indication: ADENOCARCINOMA PANCREAS

REACTIONS (1)
  - Off label use [None]
